FAERS Safety Report 8289585-5 (Version None)
Quarter: 2012Q2

REPORT INFORMATION
  Report Type: 
  Country: None (occurrence: None)
  Receive Date: 20120417
  Receipt Date: 20120412
  Transmission Date: 20120825
  Serious: Yes (Other)
  Sender: FDA-Public Use
  Company Number: PHEH2012US003277

PATIENT
  Sex: Female

DRUGS (8)
  1. GILENYA [Suspect]
     Indication: MULTIPLE SCLEROSIS
     Dosage: 0.5 MG, QD
     Route: 048
     Dates: start: 20110318
  2. SERTRALINE HYDROCHLORIDE [Concomitant]
     Indication: DEPRESSION
     Dosage: 100 MG, QD
     Dates: start: 20081020
  3. ESOMEPRAZOLE MAGNESIUM [Concomitant]
     Indication: GASTROOESOPHAGEAL REFLUX DISEASE
     Dosage: 40 MG, BID
     Dates: start: 20020101
  4. TRAMADOL HCL [Concomitant]
     Indication: PAIN
     Dosage: UNK UKN, UNK
     Dates: start: 20080904
  5. GABAPENTIN [Concomitant]
     Indication: NEUROPATHY PERIPHERAL
     Dosage: 400 MG, BID
     Dates: start: 20030101
  6. IBUPROFEN [Concomitant]
     Indication: HEADACHE
     Dosage: 200 MG, PRN
     Dates: start: 20030101
  7. PREGABALIN [Concomitant]
     Indication: NEUROPATHY PERIPHERAL
     Dosage: 75 MG, BID
     Dates: start: 20081029
  8. ULTRAM [Concomitant]
     Indication: HEADACHE
     Dosage: 50-100 MG PRN
     Dates: start: 20080904

REACTIONS (5)
  - LYMPHADENOPATHY [None]
  - GASTRITIS [None]
  - GASTRIC MUCOSAL HYPERTROPHY [None]
  - GASTRIC ANTRAL VASCULAR ECTASIA [None]
  - HEPATIC STEATOSIS [None]
